FAERS Safety Report 14559103 (Version 1)
Quarter: 2018Q1

REPORT INFORMATION
  Report Type: Spontaneous
  Country: GB (occurrence: GB)
  Receive Date: 20180221
  Receipt Date: 20180221
  Transmission Date: 20180509
  Serious: Yes (Disabling, Other)
  Sender: FDA-Public Use
  Company Number: GB-TEVA-2018-GB-859669

PATIENT
  Age: 58 Year
  Sex: Male
  Weight: 104 kg

DRUGS (5)
  1. MONTELUKAST [Suspect]
     Active Substance: MONTELUKAST SODIUM
     Indication: ASTHMA
     Dosage: 10 MILLIGRAM DAILY; EACH NIGHT
     Route: 048
     Dates: start: 20171004
  2. BRISTOL LABS MONTELUKAST [Suspect]
     Active Substance: MONTELUKAST SODIUM
     Indication: ASTHMA
     Dosage: 10 MILLIGRAM DAILY; EACH NIGHT
     Route: 048
     Dates: end: 20171206
  3. BETAHISTINE [Concomitant]
     Active Substance: BETAHISTINE
     Indication: VERTIGO
     Route: 065
     Dates: start: 200711
  4. CLENIL MODULITE [Concomitant]
     Active Substance: BECLOMETHASONE DIPROPIONATE
     Indication: ASTHMA
     Route: 065
  5. VENTOLIN [Concomitant]
     Active Substance: ALBUTEROL SULFATE
     Indication: ASTHMA
     Route: 065

REACTIONS (13)
  - Anxiety [Recovering/Resolving]
  - Insomnia [Recovering/Resolving]
  - Tearfulness [Recovered/Resolved]
  - Fatigue [Recovered/Resolved]
  - Dyspnoea [Recovering/Resolving]
  - Suicidal ideation [Recovered/Resolved]
  - Fear [Recovering/Resolving]
  - Mental fatigue [Recovered/Resolved]
  - Agitation [Recovered/Resolved]
  - Abnormal dreams [Recovering/Resolving]
  - Mental disorder [Recovered/Resolved]
  - Depression [Recovering/Resolving]
  - Depressed mood [Recovering/Resolving]

NARRATIVE: CASE EVENT DATE: 201711
